FAERS Safety Report 5314339-9 (Version None)
Quarter: 2007Q2

REPORT INFORMATION
  Report Type: 
  Country: None (occurrence: None)
  Receive Date: 20070502
  Receipt Date: 20070420
  Transmission Date: 20071010
  Serious: Yes (Hospitalization, Other)
  Sender: FDA-Public Use
  Company Number: US-BAYER-200711211BCC

PATIENT
  Age: 67 Year
  Sex: Female
  Weight: 95 kg

DRUGS (8)
  1. ASPIRIN [Suspect]
     Indication: CARDIOVASCULAR EVENT PROPHYLAXIS
     Dosage: TOTAL DAILY DOSE: 81 MG  UNIT DOSE: 81 MG
     Route: 048
  2. ONE A DAY 50 PLUS [Suspect]
     Indication: VITAMIN SUPPLEMENTATION
     Route: 048
  3. FELDENE [Concomitant]
  4. GLUCOVANCE [Concomitant]
  5. ZETIA [Concomitant]
  6. LOTREL [Concomitant]
  7. ATENOLOL [Concomitant]
  8. LIPITOR [Concomitant]

REACTIONS (4)
  - BLOOD MAGNESIUM DECREASED [None]
  - BLOOD PRESSURE INCREASED [None]
  - HEART RATE INCREASED [None]
  - TACHYARRHYTHMIA [None]
